FAERS Safety Report 7880227-7 (Version None)
Quarter: 2011Q4

REPORT INFORMATION
  Report Type: 
  Country: None (occurrence: None)
  Receive Date: 20111101
  Receipt Date: 20111028
  Transmission Date: 20120403
  Serious: No
  Sender: FDA-Public Use
  Company Number: US-PFIZER INC-2011264642

PATIENT
  Sex: Female

DRUGS (1)
  1. ADVIL CONGESTION RELIEF [Suspect]
     Indication: NASAL CONGESTION
     Dosage: 200/10MG ORAL TABLET 2-3 TIMES A DAY
     Route: 048
     Dates: start: 20111027

REACTIONS (4)
  - NASAL CONGESTION [None]
  - COUGH [None]
  - DRUG INEFFECTIVE [None]
  - RESPIRATION ABNORMAL [None]
